FAERS Safety Report 24128967 (Version 1)
Quarter: 2024Q3

REPORT INFORMATION
  Report Type: Spontaneous
  Country: US (occurrence: None)
  Receive Date: 20240722
  Receipt Date: 20240722
  Transmission Date: 20241017
  Serious: Yes (unspecified)
  Sender: Public
  Company Number: None

PATIENT
  Age: 11 Year
  Sex: Male
  Weight: 67.4 kg

DRUGS (4)
  1. TEPLIZUMAB [Suspect]
     Active Substance: TEPLIZUMAB
     Indication: Blood glucose abnormal
     Dosage: 1800 MG DAILY INTRAVENOUS
     Route: 042
     Dates: start: 20240715, end: 20240721
  2. ACETAMINOPHEN [Concomitant]
     Active Substance: ACETAMINOPHEN
     Dates: start: 20240715, end: 20240721
  3. ZOFRAN [Concomitant]
     Active Substance: ONDANSETRON HYDROCHLORIDE
     Dates: start: 20240715, end: 20240721
  4. BENADRYL [Concomitant]
     Active Substance: DIPHENHYDRAMINE HYDROCHLORIDE
     Dates: start: 20240715, end: 20240721

REACTIONS (2)
  - Hepatotoxicity [None]
  - Hepatic enzyme increased [None]

NARRATIVE: CASE EVENT DATE: 20240721
